FAERS Safety Report 8766223 (Version 2)
Quarter: 2012Q4

REPORT INFORMATION
  Report Type: 
  Country: US (occurrence: US)
  Receive Date: 20120904
  Receipt Date: 20121204
  Transmission Date: 20130627
  Serious: No
  Sender: FDA-Public Use
  Company Number: US-AMGEN-USASP2012054617

PATIENT
  Age: 63 Year
  Sex: Female
  Weight: 60.77 kg

DRUGS (6)
  1. ENBREL [Suspect]
     Indication: PSORIATIC ARTHROPATHY
     Dosage: 50 mg, qwk
     Dates: start: 20120823, end: 20120830
  2. ENBREL [Suspect]
     Indication: PSORIASIS
  3. METHOTREXATE [Concomitant]
     Dosage: 15 mg, qd
     Route: 048
     Dates: start: 20120208
  4. PREDNISONE [Concomitant]
     Dosage: 5 mg, qd
     Route: 048
     Dates: end: 20120901
  5. CYMBALTA [Concomitant]
     Dosage: UNK
     Dates: start: 20120208, end: 20120901
  6. COMIDAL L [Concomitant]
     Dosage: UNK

REACTIONS (6)
  - Psoriatic arthropathy [Unknown]
  - Rash pustular [Not Recovered/Not Resolved]
  - Purulent discharge [Not Recovered/Not Resolved]
  - Loose tooth [Not Recovered/Not Resolved]
  - Oral disorder [Not Recovered/Not Resolved]
  - Staphylococcal skin infection [Not Recovered/Not Resolved]
